FAERS Safety Report 8394290-0 (Version None)
Quarter: 2012Q2

REPORT INFORMATION
  Report Type: 
  Country: None (occurrence: None)
  Receive Date: 20120530
  Receipt Date: 20120522
  Transmission Date: 20120825
  Serious: Yes (Hospitalization)
  Sender: FDA-Public Use
  Company Number: US-BAYER-2011-123564

PATIENT
  Age: 47 Year
  Sex: Female
  Weight: 90.703 kg

DRUGS (12)
  1. DROSPIRENONE AND ETHINYL ESTRADIOL [Suspect]
     Dosage: UNK
     Dates: start: 20080801, end: 20110501
  2. YASMIN [Suspect]
  3. BENZONATATE [Concomitant]
     Dosage: 100 MG, UNK
     Route: 048
     Dates: start: 20090302
  4. CEFDINIR [Concomitant]
     Dosage: 300 MG, UNK
     Route: 048
     Dates: start: 20090302
  5. ALLEGRA [Concomitant]
  6. PROMETHAZINE [Concomitant]
     Dosage: 6.25MG/5ML
     Route: 048
     Dates: start: 20090302
  7. CHLORHEXIDINE GLUCONATE [Concomitant]
     Dosage: UNK
     Dates: start: 20090420
  8. DARVOCET [Concomitant]
     Indication: PAIN
  9. HYDROCORTISONE [Concomitant]
     Dosage: UNK
     Route: 061
     Dates: start: 20090402
  10. VITAMIN D [Concomitant]
     Dosage: 1.25 MG, UNK
     Route: 048
     Dates: start: 20090402
  11. FEXOFENADINE HYDROCHLORIDE [Concomitant]
     Dosage: 180 MG, UNK
     Route: 048
     Dates: start: 20090402
  12. DYNACIRC CR [Concomitant]
     Indication: HYPERTENSION
     Dosage: 5 MG, UNK
     Route: 048
     Dates: start: 20090414

REACTIONS (7)
  - EMOTIONAL DISTRESS [None]
  - GALLBLADDER INJURY [None]
  - CHOLECYSTITIS ACUTE [None]
  - SCAR [None]
  - PAIN [None]
  - ANXIETY [None]
  - GENERAL PHYSICAL HEALTH DETERIORATION [None]
